FAERS Safety Report 17256461 (Version 1)
Quarter: 2020Q1

REPORT INFORMATION
  Report Type: Spontaneous
  Country: ES (occurrence: ES)
  Receive Date: 20200110
  Receipt Date: 20200110
  Transmission Date: 20200409
  Serious: Yes (Hospitalization)
  Sender: FDA-Public Use
  Company Number: ES-ACCORD-169247

PATIENT
  Age: 15 Year
  Sex: Male

DRUGS (1)
  1. METHOTREXATE. [Suspect]
     Active Substance: METHOTREXATE
     Indication: ACUTE LYMPHOCYTIC LEUKAEMIA
     Dosage: 5 G / M2 DAY IN 24 HOURS ON DAY 1 OF THE CYCLE
     Route: 041
     Dates: start: 20181227, end: 20181227

REACTIONS (2)
  - Anxiety [Recovered/Resolved]
  - Acute kidney injury [Recovered/Resolved]

NARRATIVE: CASE EVENT DATE: 20181229
